FAERS Safety Report 7478444-3 (Version None)
Quarter: 2011Q2

REPORT INFORMATION
  Report Type: 
  Country: None (occurrence: None)
  Receive Date: 20110505
  Receipt Date: 20110421
  Transmission Date: 20111010
  Serious: Yes (Hospitalization)
  Sender: FDA-Public Use
  Company Number: 027718

PATIENT
  Sex: Male

DRUGS (2)
  1. CIMZIA [Suspect]
     Indication: CROHN'S DISEASE
     Dosage: SUBCUTANEOUS
     Route: 058
     Dates: start: 20100324
  2. CIMZIA [Suspect]

REACTIONS (3)
  - BLOOD COUNT ABNORMAL [None]
  - ECONOMIC PROBLEM [None]
  - HAEMORRHAGE [None]
